FAERS Safety Report 8363563-X (Version None)
Quarter: 2012Q2

REPORT INFORMATION
  Report Type: 
  Country: None (occurrence: None)
  Receive Date: 20120516
  Receipt Date: 20120507
  Transmission Date: 20120825
  Serious: Yes (Other)
  Sender: FDA-Public Use
  Company Number: US-JNJFOC-20120303367

PATIENT
  Sex: Female

DRUGS (2)
  1. REMICADE [Suspect]
     Route: 042
     Dates: end: 20120202
  2. REMICADE [Suspect]
     Indication: CROHN'S DISEASE
     Route: 042
     Dates: start: 20100615

REACTIONS (4)
  - ERYTHEMA [None]
  - DYSPNOEA [None]
  - INFUSION RELATED REACTION [None]
  - EYE HAEMORRHAGE [None]
